FAERS Safety Report 6190165-6 (Version None)
Quarter: 2009Q2

REPORT INFORMATION
  Report Type: 
  Country: None (occurrence: None)
  Receive Date: 20090514
  Receipt Date: 20090506
  Transmission Date: 20091009
  Serious: Yes (Other)
  Sender: FDA-Public Use
  Company Number: US-ELI_LILLY_AND_COMPANY-US200903004449

PATIENT
  Sex: Female

DRUGS (10)
  1. FORTEO [Suspect]
     Indication: OSTEOPOROSIS
     Dosage: 20 UG, DAILY (1/D)
     Dates: start: 20061001, end: 20081201
  2. CAPTOPRIL [Concomitant]
  3. NITROGLYCERIN [Concomitant]
  4. ASPIRIN [Concomitant]
  5. PLAVIX [Concomitant]
  6. REGLAN [Concomitant]
  7. ACIPHEX [Concomitant]
  8. LORAZEPAM [Concomitant]
  9. TYLENOL W/ CODEINE [Concomitant]
  10. ATENOLOL [Concomitant]

REACTIONS (2)
  - BRADYCARDIA [None]
  - GASTROOESOPHAGEAL REFLUX DISEASE [None]
